FAERS Safety Report 20579582 (Version 1)
Quarter: 2022Q1

REPORT INFORMATION
  Report Type: Report from Study
  Country: MY (occurrence: MY)
  Receive Date: 20220310
  Receipt Date: 20220310
  Transmission Date: 20220423
  Serious: Yes (Other)
  Sender: FDA-Public Use
  Company Number: MY-shionogi-202202040_S-649266_C_1

PATIENT
  Age: 68 Year
  Sex: Male

DRUGS (5)
  1. CEFIDEROCOL [Suspect]
     Active Substance: CEFIDEROCOL
     Indication: Bacteraemia
     Dosage: INFUSION DISCONTINUED AFTER 30 MINS
     Route: 041
     Dates: start: 20220224, end: 20220224
  2. ACTRAPID [Concomitant]
     Active Substance: INSULIN HUMAN
     Dosage: 6U, PRN
     Route: 058
  3. CEFAZOLIN [Concomitant]
     Active Substance: CEFAZOLIN
     Dosage: 1 G, OD
     Route: 042
  4. CEFTAZIDIME [Concomitant]
     Active Substance: CEFTAZIDIME
     Dosage: 1 G, OD
     Route: 042
  5. PANTOPRAZOLE [Concomitant]
     Active Substance: PANTOPRAZOLE
     Dosage: 40 MG, OD
     Route: 042

REACTIONS (1)
  - Chills [Recovered/Resolved]

NARRATIVE: CASE EVENT DATE: 20220224
